FAERS Safety Report 8398993-3 (Version None)
Quarter: 2012Q2

REPORT INFORMATION
  Report Type: 
  Country: None (occurrence: None)
  Receive Date: 20120323
  Receipt Date: 20110215
  Transmission Date: 20120825
  Serious: Yes (Other)
  Sender: FDA-Public Use
  Company Number: 163-21880-11010595

PATIENT
  Age: 61 Year
  Sex: Male

DRUGS (12)
  1. DECADRON [Concomitant]
  2. CYTOXAN [Suspect]
     Indication: PRODUCT USED FOR UNKNOWN INDICATION
     Dates: end: 20100902
  3. REVLIMID [Suspect]
     Indication: MULTIPLE MYELOMA
     Dosage: 25 MG , DAILY FOR 14 DAYS ON THEN 7 DAYS OFF, PO, 15 MG, DAILY FOR 14 DAYS ON THEN 7 DAYS OFF, PO,
     Route: 048
     Dates: start: 20110201
  4. REVLIMID [Suspect]
     Indication: MULTIPLE MYELOMA
     Dosage: 25 MG , DAILY FOR 14 DAYS ON THEN 7 DAYS OFF, PO, 15 MG, DAILY FOR 14 DAYS ON THEN 7 DAYS OFF, PO,
     Route: 048
     Dates: start: 20100722, end: 20100826
  5. REVLIMID [Suspect]
     Indication: MULTIPLE MYELOMA
     Dosage: 25 MG , DAILY FOR 14 DAYS ON THEN 7 DAYS OFF, PO, 15 MG, DAILY FOR 14 DAYS ON THEN 7 DAYS OFF, PO,
     Route: 048
     Dates: start: 20100930
  6. LYRICA [Concomitant]
  7. ACYCLOVIR [Concomitant]
  8. COMPAZINE [Concomitant]
  9. PRILOSEC [Concomitant]
  10. LEVOTHYROXINE SODIUM [Concomitant]
  11. XANAX [Concomitant]
  12. HYDROCHLOROTHIAZIDE [Concomitant]

REACTIONS (4)
  - WHITE BLOOD CELL COUNT DECREASED [None]
  - DIZZINESS [None]
  - PLATELET COUNT DECREASED [None]
  - NEUTROPHIL COUNT DECREASED [None]
